FAERS Safety Report 16259541 (Version 4)
Quarter: 2022Q1

REPORT INFORMATION
  Report Type: Spontaneous
  Country: US (occurrence: US)
  Receive Date: 20190501
  Receipt Date: 20220203
  Transmission Date: 20220424
  Serious: Yes (Hospitalization, Other)
  Sender: FDA-Public Use
  Company Number: US-ASTELLAS-2019US017878

PATIENT
  Age: 51 Year
  Sex: Female
  Weight: 111 kg

DRUGS (21)
  1. TAMSULOSIN [Suspect]
     Active Substance: TAMSULOSIN
     Indication: Product used for unknown indication
     Dosage: UNK UNK, ONCE DAILY (HS)
     Route: 065
  2. TAMSULOSIN [Suspect]
     Active Substance: TAMSULOSIN
     Dosage: 0.4 MG, ONCE DAILY
     Route: 048
  3. SOLIFENACIN [Suspect]
     Active Substance: SOLIFENACIN
     Indication: Bladder disorder
     Dosage: 5 MG, ONCE DAILY (HS)
     Route: 065
  4. LIPITOR [Suspect]
     Active Substance: ATORVASTATIN CALCIUM
     Indication: Blood cholesterol
     Dosage: 10 MG, ONCE DAILY (HS)
     Route: 065
  5. AUBAGIO [Suspect]
     Active Substance: TERIFLUNOMIDE
     Indication: Multiple sclerosis
     Route: 048
     Dates: start: 20131003
  6. AUBAGIO [Suspect]
     Active Substance: TERIFLUNOMIDE
     Route: 048
     Dates: start: 20131114, end: 20140312
  7. AUBAGIO [Suspect]
     Active Substance: TERIFLUNOMIDE
     Route: 048
     Dates: end: 20140316
  8. AUBAGIO [Suspect]
     Active Substance: TERIFLUNOMIDE
     Route: 048
     Dates: end: 20140318
  9. AUBAGIO [Suspect]
     Active Substance: TERIFLUNOMIDE
     Route: 048
     Dates: start: 20140320, end: 20141122
  10. AUBAGIO [Suspect]
     Active Substance: TERIFLUNOMIDE
     Route: 048
     Dates: start: 20150826
  11. AUBAGIO [Suspect]
     Active Substance: TERIFLUNOMIDE
     Route: 048
     Dates: end: 20161117
  12. AUBAGIO [Suspect]
     Active Substance: TERIFLUNOMIDE
     Route: 048
     Dates: start: 20161121, end: 202003
  13. MORNIFLUMATE [Suspect]
     Active Substance: MORNIFLUMATE
     Indication: Product used for unknown indication
     Dosage: UNK UNK, ONCE DAILY (AT BEDTIME)
     Route: 065
  14. ESCITALOPRAM OXALATE [Suspect]
     Active Substance: ESCITALOPRAM OXALATE
     Indication: Depression
     Dosage: 20 MG, ONCE DAILY (HS)
     Route: 065
  15. METFORMIN HYDROCHLORIDE [Suspect]
     Active Substance: METFORMIN HYDROCHLORIDE
     Indication: Glucose tolerance impaired
     Route: 065
     Dates: start: 20130621
  16. VITAMIN D3 [Suspect]
     Active Substance: CHOLECALCIFEROL
     Indication: Product used for unknown indication
     Route: 065
  17. CALCIUM [Suspect]
     Active Substance: CALCIUM
     Indication: Product used for unknown indication
     Route: 065
  18. CALCIUM [Suspect]
     Active Substance: CALCIUM
     Dosage: UNK UNK, UNKNOWN FREQ.
     Route: 065
     Dates: end: 201703
  19. FOLIC ACID [Suspect]
     Active Substance: FOLIC ACID
     Indication: Product used for unknown indication
     Route: 065
  20. VITAMIN B-COMPLEX [Suspect]
     Active Substance: DEXPANTHENOL\NIACINAMIDE\PYRIDOXINE HYDROCHLORIDE\RIBOFLAVIN 5^-PHOSPHATE SODIUM\THIAMINE HYDROCHLOR
     Indication: Product used for unknown indication
     Dosage: UNK UNK, UNKNOWN FREQ.
     Route: 065
  21. MIRTAZAPINE [Concomitant]
     Active Substance: MIRTAZAPINE
     Indication: Sleep disorder
     Dosage: UNK UNK, ONCE DAILY, AS NEEDED
     Route: 048

REACTIONS (41)
  - Diverticulitis [Unknown]
  - Multiple sclerosis relapse [Not Recovered/Not Resolved]
  - Gastric ulcer [Recovered/Resolved]
  - Fatigue [Not Recovered/Not Resolved]
  - Decreased appetite [Unknown]
  - Hypersomnia [Unknown]
  - Balance disorder [Not Recovered/Not Resolved]
  - Vision blurred [Recovering/Resolving]
  - Anxiety [Not Recovered/Not Resolved]
  - Pruritus [Unknown]
  - Temperature intolerance [Not Recovered/Not Resolved]
  - Amnesia [Not Recovered/Not Resolved]
  - Acrophobia [Not Recovered/Not Resolved]
  - Arthritis [Unknown]
  - Anxiety [Not Recovered/Not Resolved]
  - Tinnitus [Not Recovered/Not Resolved]
  - Pain [Not Recovered/Not Resolved]
  - Pain [Not Recovered/Not Resolved]
  - Abdominal pain [Unknown]
  - Vertigo [Not Recovered/Not Resolved]
  - Vomiting [Unknown]
  - Depression [Not Recovered/Not Resolved]
  - Nasopharyngitis [Unknown]
  - Back disorder [Not Recovered/Not Resolved]
  - Myalgia [Unknown]
  - Gait disturbance [Not Recovered/Not Resolved]
  - Alopecia [Recovered/Resolved]
  - Paraesthesia [Not Recovered/Not Resolved]
  - Diarrhoea [Unknown]
  - Hypoaesthesia [Not Recovered/Not Resolved]
  - Nausea [Unknown]
  - Influenza [Unknown]
  - Hospitalisation [Unknown]
  - Back pain [Unknown]
  - Rhinorrhoea [Unknown]
  - Sputum discoloured [Unknown]
  - Multiple sclerosis relapse [Not Recovered/Not Resolved]
  - Pain in extremity [Not Recovered/Not Resolved]
  - Stress [Not Recovered/Not Resolved]
  - Condition aggravated [Not Recovered/Not Resolved]
  - Intentional product use issue [Unknown]

NARRATIVE: CASE EVENT DATE: 20131201
